FAERS Safety Report 6958075-1 (Version None)
Quarter: 2010Q3

REPORT INFORMATION
  Report Type: 
  Country: None (occurrence: None)
  Receive Date: 20100831
  Receipt Date: 20100817
  Transmission Date: 20110219
  Serious: Yes (Hospitalization)
  Sender: FDA-Public Use
  Company Number: FR-JNJFOC-20100808990

PATIENT
  Age: 65 Year
  Sex: Male

DRUGS (2)
  1. IXPRIM [Suspect]
     Indication: PROCEDURAL PAIN
     Route: 048
  2. ANAESTHETICS [Suspect]
     Indication: SURGERY
     Route: 065

REACTIONS (6)
  - ABDOMINAL DISCOMFORT [None]
  - DIARRHOEA [None]
  - INCONTINENCE [None]
  - INSOMNIA [None]
  - OEDEMA PERIPHERAL [None]
  - URINARY RETENTION [None]
